FAERS Safety Report 6528937-8 (Version None)
Quarter: 2009Q4

REPORT INFORMATION
  Report Type: 
  Country: None (occurrence: None)
  Receive Date: 20091224
  Receipt Date: 20091214
  Transmission Date: 20100525
  Serious: Yes (Hospitalization)
  Sender: FDA-Public Use
  Company Number: 2009003849

PATIENT
  Age: 60 Year
  Sex: Female

DRUGS (7)
  1. ERLOTINIB HYDROCHLORIDE [Suspect]
     Indication: NON-SMALL CELL LUNG CANCER
     Dosage: (100 MG, QD) ,ORAL
     Route: 048
     Dates: start: 20091203
  2. LANSOPRAZOLE [Concomitant]
  3. RANITIDINE [Concomitant]
  4. DEXAMETHASONE TAB [Concomitant]
  5. LAMOTRIGINE [Concomitant]
  6. MORPHINE SULFATE [Concomitant]
  7. ORAMORPH SR [Concomitant]

REACTIONS (2)
  - CEREBROVASCULAR ACCIDENT [None]
  - HEMIPARESIS [None]
